FAERS Safety Report 15230062 (Version 2)
Quarter: 2021Q3

REPORT INFORMATION
  Report Type: Spontaneous
  Country: US (occurrence: US)
  Receive Date: 20180802
  Receipt Date: 20210809
  Transmission Date: 20211014
  Serious: Yes (Other)
  Sender: FDA-Public Use
  Company Number: US-ACCORD-063012

PATIENT
  Age: 70 Year
  Sex: Female
  Weight: 130.63 kg

DRUGS (17)
  1. DOCETAXEL ACCORD [Suspect]
     Active Substance: DOCETAXEL
     Indication: BREAST CANCER
     Dosage: WITH 250 ML NS
     Dates: start: 20150824, end: 20151026
  2. ATORVASTATIN [Concomitant]
     Active Substance: ATORVASTATIN
     Dosage: STRENGTH: 20 MG
     Dates: start: 20150915
  3. DILTIAZEM. [Concomitant]
     Active Substance: DILTIAZEM
     Dosage: STRENGTH: 120 MG
     Dates: start: 20070101
  4. APIXABAN [Concomitant]
     Active Substance: APIXABAN
     Dosage: STRENGTH: 5 MG
     Dates: start: 20070101
  5. CLONAZEPAM. [Concomitant]
     Active Substance: CLONAZEPAM
     Dosage: STRENGTH: 1 MG
     Dates: start: 20150625
  6. CYTOXAN [Suspect]
     Active Substance: CYCLOPHOSPHAMIDE
     Indication: BREAST CANCER
     Dosage: WITH 250 ML NS
     Dates: start: 20150824, end: 20151026
  7. DEXAMETHASONE. [Concomitant]
     Active Substance: DEXAMETHASONE
     Dosage: TAKEN AT HOME
     Route: 048
     Dates: start: 20150824, end: 20151026
  8. TAMOXIFEN [Concomitant]
     Active Substance: TAMOXIFEN
     Dosage: STRENGTH: 20 MG
     Dates: start: 20150625, end: 20151026
  9. FLUOXETINE [Concomitant]
     Active Substance: FLUOXETINE HYDROCHLORIDE
     Dosage: STRENGTH: 40 MG
     Dates: start: 20150625
  10. ALOXI [Concomitant]
     Active Substance: PALONOSETRON HYDROCHLORIDE
     Route: 042
     Dates: start: 20150824, end: 20151026
  11. DIPHENHYDRAMINE. [Concomitant]
     Active Substance: DIPHENHYDRAMINE
     Dosage: TAKEN AT HOME
     Route: 048
     Dates: start: 20150824, end: 20151026
  12. ZANTAC [Concomitant]
     Active Substance: RANITIDINE HYDROCHLORIDE
     Dosage: TAKEN AT HOME
     Route: 048
     Dates: start: 20150824, end: 20151026
  13. METOPROLOL. [Concomitant]
     Active Substance: METOPROLOL
     Dosage: STRENGTH: 75 MG
     Dates: start: 20150915
  14. LOSARTAN. [Concomitant]
     Active Substance: LOSARTAN
     Dosage: STRENGTH: 25 MG
  15. NEULASTA [Concomitant]
     Active Substance: PEGFILGRASTIM
  16. CALCIUM CARBONATE/CALCIUM LACTOGLUCONATE [Concomitant]
     Active Substance: CALCIUM CARBONATE\CALCIUM LACTATE GLUCONATE
     Dosage: STRENGTH: 600 MG
     Dates: start: 20150625
  17. ERGOCALCIFEROL. [Concomitant]
     Active Substance: ERGOCALCIFEROL
     Dosage: STRENGTH: 800 MG
     Dates: start: 20150625

REACTIONS (1)
  - Alopecia [Not Recovered/Not Resolved]

NARRATIVE: CASE EVENT DATE: 20150915
